FAERS Safety Report 4946886-3 (Version None)
Quarter: 2006Q1

REPORT INFORMATION
  Report Type: 
  Country: None (occurrence: None)
  Receive Date: 20060201
  Receipt Date: 20051209
  Transmission Date: 20060701
  Serious: No
  Sender: FDA-Public Use
  Company Number: 2005PV005653

PATIENT
  Age: 63 Year
  Sex: Female
  Weight: 87.5442 kg

DRUGS (4)
  1. BYETTA [Suspect]
     Indication: DIABETES MELLITUS NON-INSULIN-DEPENDENT
     Dosage: SEE IMAGE
     Route: 058
     Dates: start: 20050901, end: 20051001
  2. BYETTA [Suspect]
     Indication: DIABETES MELLITUS NON-INSULIN-DEPENDENT
     Dosage: SEE IMAGE
     Route: 058
     Dates: start: 20051001
  3. HUMALOG [Concomitant]
  4. LANTUS [Concomitant]

REACTIONS (7)
  - ASTHENIA [None]
  - BLOOD GLUCOSE DECREASED [None]
  - HYPERHIDROSIS [None]
  - MIDDLE INSOMNIA [None]
  - PALPITATIONS [None]
  - THERAPEUTIC RESPONSE UNEXPECTED [None]
  - TREMOR [None]
